FAERS Safety Report 8532274-X (Version None)
Quarter: 2012Q3

REPORT INFORMATION
  Report Type: 
  Country: None (occurrence: None)
  Receive Date: 20120724
  Receipt Date: 20120717
  Transmission Date: 20120928
  Serious: Yes (Other)
  Sender: FDA-Public Use
  Company Number: PHHY2012IT062593

PATIENT
  Age: 65 Year
  Sex: Male

DRUGS (6)
  1. CABERGOLINE [Suspect]
     Indication: PARKINSON'S DISEASE
     Dosage: 8 MG, PER DAY
  2. PRAMIPEXOLE DIHYCHLORIDE [Suspect]
     Dosage: 1.2 MG, PER DAY
  3. CARBIDOPA AND LEVODOPA [Suspect]
     Indication: PARKINSON'S DISEASE
  4. ENTACAPONE [Concomitant]
     Indication: PARKINSON'S DISEASE
     Dosage: 800 MG/DAY
  5. PRAMIPEXOLE DIHYCHLORIDE [Suspect]
     Indication: PARKINSON'S DISEASE
     Dosage: 3.05 MG/DAY
  6. BENSERAZIDE, LEVODOPA [Suspect]
     Indication: PARKINSON'S DISEASE
     Dosage: 1000 MG/DAY

REACTIONS (3)
  - COMPULSIVE SHOPPING [None]
  - IRRITABILITY [None]
  - PATHOLOGICAL GAMBLING [None]
